FAERS Safety Report 5818250-6 (Version None)
Quarter: 2008Q3

REPORT INFORMATION
  Report Type: 
  Country: None (occurrence: None)
  Receive Date: 20080722
  Receipt Date: 20080710
  Transmission Date: 20090109
  Serious: Yes (Other)
  Sender: FDA-Public Use
  Company Number: IR-PFIZER INC-2008048108

PATIENT
  Age: 16 Year
  Sex: Male

DRUGS (5)
  1. SERTRALINE [Suspect]
     Indication: OBSESSIVE-COMPULSIVE DISORDER
  2. RISPERIDONE [Suspect]
     Indication: OBSESSIVE-COMPULSIVE DISORDER
  3. RISPERIDONE [Suspect]
     Indication: TIC
  4. RISPERIDONE [Suspect]
     Indication: TOURETTE'S DISORDER
  5. ALL OTHER THERAPEUTIC PRODUCTS [Concomitant]

REACTIONS (1)
  - ECHOLALIA [None]
